FAERS Safety Report 17362387 (Version 2)
Quarter: 2020Q2

REPORT INFORMATION
  Report Type: Spontaneous
  Country: US (occurrence: US)
  Receive Date: 20200203
  Receipt Date: 20200407
  Transmission Date: 20200713
  Serious: Yes (Hospitalization, Other)
  Sender: FDA-Public Use
  Company Number: US-SHIRE-US202000856

PATIENT
  Age: 58 Year
  Sex: Female

DRUGS (3)
  1. GATTEX [Suspect]
     Active Substance: TEDUGLUTIDE\WATER
     Dosage: 0.22 1X/DAY:QD
     Route: 058
     Dates: start: 20051111
  2. GATTEX [Suspect]
     Active Substance: TEDUGLUTIDE\WATER
     Indication: SHORT-BOWEL SYNDROME
     Dosage: 2.5 MILLIGRAM FIVE DAYS PER WEEK
     Route: 065
  3. GATTEX [Suspect]
     Active Substance: TEDUGLUTIDE\WATER
     Dosage: 2.5 MILLIGRAM TWO DAYS PER WEEK
     Route: 065

REACTIONS (3)
  - Intervertebral disc protrusion [Recovered/Resolved]
  - Constipation [Recovered/Resolved]
  - Product dose omission [Recovered/Resolved]

NARRATIVE: CASE EVENT DATE: 20190101
